FAERS Safety Report 4805229-6 (Version None)
Quarter: 2005Q4

REPORT INFORMATION
  Report Type: 
  Country: None (occurrence: None)
  Receive Date: 20051020
  Receipt Date: 20050727
  Transmission Date: 20060501
  Serious: Yes (Hospitalization, Other)
  Sender: FDA-Public Use
  Company Number: US-MERCK-0507USA04311

PATIENT
  Age: 54 Year
  Sex: Female
  Weight: 100 kg

DRUGS (33)
  1. VIOXX [Suspect]
     Indication: ARTHRITIS
     Route: 048
     Dates: start: 20010608, end: 20030309
  2. FUROSEMIDE [Concomitant]
     Route: 065
     Dates: start: 19990211, end: 20040914
  3. METFORMIN [Concomitant]
     Route: 065
     Dates: start: 20020604
  4. NIFEDIPINE [Concomitant]
     Route: 065
     Dates: start: 20001002, end: 20041214
  5. QUININE [Concomitant]
     Route: 065
     Dates: start: 19970804
  6. ALLEGRA [Concomitant]
     Route: 065
     Dates: start: 19980723
  7. AMARYL [Concomitant]
     Route: 065
     Dates: start: 20030218
  8. AMARYL [Concomitant]
     Route: 065
  9. ATENOL [Concomitant]
     Route: 065
  10. BEXTRA [Concomitant]
     Route: 065
     Dates: start: 20030319
  11. LEVOXYL [Concomitant]
     Route: 065
     Dates: start: 20030115
  12. MAGNESIUM OXIDE [Concomitant]
     Route: 065
     Dates: start: 20030207
  13. TRAMADOL MSD [Concomitant]
     Route: 065
  14. ANUCORT [Concomitant]
     Route: 065
  15. ACETAMINOPHEN AND BUTALBITAL AND CAFFEINE [Concomitant]
     Route: 065
  16. CEPHALEXIN [Concomitant]
     Route: 065
  17. CIPRO [Concomitant]
     Route: 065
  18. CLIMARA [Concomitant]
     Route: 065
  19. CLONAZEPAM [Concomitant]
     Route: 065
  20. DIGITEK [Concomitant]
     Route: 065
  21. ENDODAN [Concomitant]
     Route: 065
  22. FAMOTIDINE [Concomitant]
     Route: 065
  23. GLUCOPHAGE [Concomitant]
     Route: 065
  24. HYOSCYAMINE [Concomitant]
     Route: 065
  25. POTASSIUM CHLORIDE [Concomitant]
     Route: 065
  26. LEVAQUIN [Concomitant]
     Route: 065
  27. LOPROX [Concomitant]
     Route: 065
  28. PERI-DOS [Concomitant]
     Route: 065
  29. ROXICET [Concomitant]
     Route: 065
  30. SEPTRA [Concomitant]
     Route: 065
  31. ULTRAM [Concomitant]
     Route: 065
  32. WARFARIN [Concomitant]
     Route: 065
  33. ZITHROMAX [Concomitant]
     Route: 065

REACTIONS (6)
  - ATRIAL FIBRILLATION [None]
  - BLADDER DISORDER [None]
  - CHEST PAIN [None]
  - CORONARY ARTERY DISEASE [None]
  - CYSTOCELE [None]
  - MYOCARDIAL INFARCTION [None]
